FAERS Safety Report 7333585-6 (Version None)
Quarter: 2011Q1

REPORT INFORMATION
  Report Type: 
  Country: None (occurrence: None)
  Receive Date: 20110304
  Receipt Date: 20110223
  Transmission Date: 20110831
  Serious: Yes (Other)
  Sender: FDA-Public Use
  Company Number: GR-GENENTECH-314455

PATIENT
  Sex: Female

DRUGS (1)
  1. MABTHERA [Suspect]
     Indication: SCLERODERMA
     Dosage: 1000 MG, D1+15/Q6M
     Route: 042
     Dates: start: 20110203

REACTIONS (4)
  - COUGH [None]
  - PERICARDITIS [None]
  - TRANSAMINASES INCREASED [None]
  - CHEST PAIN [None]
